FAERS Safety Report 5698254-7 (Version None)
Quarter: 2008Q2

REPORT INFORMATION
  Report Type: 
  Country: None (occurrence: None)
  Receive Date: 20080403
  Receipt Date: 20080322
  Transmission Date: 20081010
  Serious: Yes (Hospitalization, Other)
  Sender: FDA-Public Use
  Company Number: 2008AP000723

PATIENT
  Age: 41 Year
  Sex: Female

DRUGS (3)
  1. HALOPERIDOL [Suspect]
     Indication: AGITATION
  2. BENZTROPINE MESYLATE [Suspect]
     Indication: AGITATION
  3. LORAZEPAM [Concomitant]

REACTIONS (9)
  - AGITATION [None]
  - CATATONIA [None]
  - DYSTONIA [None]
  - ENCEPHALITIS ALLERGIC [None]
  - ENCEPHALITIS VIRAL [None]
  - NO THERAPEUTIC RESPONSE [None]
  - PNEUMONIA ASPIRATION [None]
  - PULMONARY EMBOLISM [None]
  - WHITE BLOOD CELL COUNT DECREASED [None]
